FAERS Safety Report 16889699 (Version 1)
Quarter: 2019Q4

REPORT INFORMATION
  Report Type: Spontaneous
  Country: CN (occurrence: CN)
  Receive Date: 20191007
  Receipt Date: 20191007
  Transmission Date: 20200122
  Serious: Yes (Hospitalization)
  Sender: FDA-Public Use
  Company Number: CN-PFIZER INC-2019426326

PATIENT
  Age: 45 Year
  Sex: Male
  Weight: 76.5 kg

DRUGS (3)
  1. TIGECYCLINE. [Suspect]
     Active Substance: TIGECYCLINE
     Indication: ANTI-INFECTIVE THERAPY
     Dosage: 50 MG, 2X/DAY
     Route: 041
     Dates: start: 20190918, end: 20190927
  2. SODIUM CHLORIDE. [Concomitant]
     Active Substance: SODIUM CHLORIDE
     Indication: VEHICLE SOLUTION USE
     Dosage: 100 ML, 2X/DAY
     Route: 041
     Dates: start: 20190918, end: 20190927
  3. VORICONAZOLE. [Suspect]
     Active Substance: VORICONAZOLE
     Indication: ANTI-INFECTIVE THERAPY
     Dosage: 0.2 G, 2X/DAY
     Route: 041
     Dates: start: 20190918, end: 20190927

REACTIONS (3)
  - Pneumonia [Unknown]
  - Cardiac disorder [Unknown]
  - Amylase increased [Recovering/Resolving]

NARRATIVE: CASE EVENT DATE: 20190920
